FAERS Safety Report 5017521-3 (Version None)
Quarter: 2006Q2

REPORT INFORMATION
  Report Type: 
  Country: None (occurrence: None)
  Receive Date: 20060601
  Receipt Date: 20060601
  Transmission Date: 20061013
  Serious: Yes (Other)
  Sender: FDA-Public Use
  Company Number: None

PATIENT
  Age: 60 Year
  Weight: 67.1324 kg

DRUGS (2)
  1. BENAZEPRIL HCL [Suspect]
     Indication: PROPHYLAXIS
     Dosage: 1 TAB DAILY   10 MG.   ORALLY
     Route: 048
  2. BENAZEPRIL HCL [Suspect]
     Indication: RENAL DISORDER
     Dosage: 1 TAB DAILY   10 MG.   ORALLY
     Route: 048

REACTIONS (6)
  - ABDOMINAL PAIN [None]
  - ABDOMINAL PAIN UPPER [None]
  - CONSTIPATION [None]
  - GASTROINTESTINAL PAIN [None]
  - HEADACHE [None]
  - MEDICATION RESIDUE [None]
